FAERS Safety Report 6463872-5 (Version None)
Quarter: 2009Q4

REPORT INFORMATION
  Report Type: 
  Country: None (occurrence: None)
  Receive Date: 20091130
  Receipt Date: 20091130
  Transmission Date: 20100525
  Serious: Yes (Life-Threatening, Hospitalization, Other)
  Sender: FDA-Public Use
  Company Number: None

PATIENT
  Age: 66 Year
  Sex: Female
  Weight: 58.9676 kg

DRUGS (2)
  1. CRESTOR [Suspect]
     Indication: HYPERLIPIDAEMIA
     Dosage: 80 MG QD PO
     Route: 048
     Dates: start: 20090701, end: 20091001
  2. ULORIC [Suspect]
     Indication: GOUT
     Dosage: 40 MG  PO
     Route: 048
     Dates: start: 20090901, end: 20091001

REACTIONS (3)
  - BLOOD TEST ABNORMAL [None]
  - DYSPNOEA EXERTIONAL [None]
  - FATIGUE [None]
